FAERS Safety Report 17368242 (Version 1)
Quarter: 2020Q1

REPORT INFORMATION
  Report Type: Spontaneous
  Country: US (occurrence: US)
  Receive Date: 20200120
  Receipt Date: 20200120
  Transmission Date: 20200409
  Serious: Yes (Hospitalization)
  Sender: FDA-Public Use
  Company Number: None

PATIENT
  Age: 53 Year
  Sex: Male

DRUGS (4)
  1. METROTEXATE [Concomitant]
     Active Substance: METHOTREXATE
  2. HUMIRA [Suspect]
     Active Substance: ADALIMUMAB
     Indication: PSORIATIC ARTHROPATHY
     Dosage: ?          OTHER FREQUENCY:EVERY 14 DAYS;?
     Route: 058
     Dates: start: 20180908
  3. LOSARTAN. [Concomitant]
     Active Substance: LOSARTAN
  4. NICOTINAMIDE [Concomitant]
     Active Substance: NIACINAMIDE

REACTIONS (1)
  - Cancer surgery [None]

NARRATIVE: CASE EVENT DATE: 20191201
